FAERS Safety Report 21808551 (Version 3)
Quarter: 2023Q1

REPORT INFORMATION
  Report Type: Report from Study
  Country: SE (occurrence: SE)
  Receive Date: 20230103
  Receipt Date: 20230203
  Transmission Date: 20230418
  Serious: Yes (Death, Hospitalization, Other)
  Sender: FDA-Public Use
  Company Number: SE-ABBVIE-4256023

PATIENT
  Age: 72 Year
  Sex: Male

DRUGS (4)
  1. CARBIDOPA\LEVODOPA [Suspect]
     Active Substance: CARBIDOPA\LEVODOPA
     Indication: Parkinson^s disease
     Dosage: THERAPY DURATION: REMAINS AT 16H
     Route: 050
     Dates: start: 20210420
  2. CARBIDOPA\LEVODOPA [Suspect]
     Active Substance: CARBIDOPA\LEVODOPA
  3. PENICILLIN [Concomitant]
     Active Substance: PENICILLIN
     Indication: Pneumonia
     Dates: end: 20230110
  4. COVID-19 Vaccine [Concomitant]
     Indication: COVID-19 immunisation
     Dosage: LAST ADMIN DATE WAS DEC 2022, 1 IN ONCE
     Route: 030
     Dates: start: 202212

REACTIONS (9)
  - Influenza [Fatal]
  - Hypotension [Recovering/Resolving]
  - Fall [Unknown]
  - Muscular weakness [Recovering/Resolving]
  - Illness [Unknown]
  - Arthropathy [Unknown]
  - Pneumonia [Recovered/Resolved]
  - Gait inability [Unknown]
  - Speech disorder [Unknown]

NARRATIVE: CASE EVENT DATE: 20221201
